FAERS Safety Report 4834878-4 (Version None)
Quarter: 2005Q4

REPORT INFORMATION
  Report Type: 
  Country: None (occurrence: None)
  Receive Date: 20051115
  Receipt Date: 20051104
  Transmission Date: 20060501
  Serious: Yes (Other)
  Sender: FDA-Public Use
  Company Number: 12837

PATIENT
  Age: 74 Year
  Sex: Male

DRUGS (5)
  1. CISPLATIN [Suspect]
     Indication: PANCREATIC CARCINOMA
  2. FLUOROURACIL [Suspect]
     Indication: PANCREATIC CARCINOMA
  3. LEUCOVORIN [Suspect]
     Indication: PANCREATIC CARCINOMA
  4. GEMCITABINE [Suspect]
     Indication: PANCREATIC CARCINOMA
  5. IRINOTECAN HCL [Suspect]
     Indication: PANCREATIC CARCINOMA

REACTIONS (2)
  - DRUG INEFFECTIVE [None]
  - LIVER DISORDER [None]
